FAERS Safety Report 17952732 (Version 1)
Quarter: 2020Q2

REPORT INFORMATION
  Report Type: Spontaneous
  Country: ES (occurrence: ES)
  Receive Date: 20200626
  Receipt Date: 20200626
  Transmission Date: 20200714
  Serious: Yes (Life-Threatening)
  Sender: FDA-Public Use
  Company Number: ES-BAXTER-2020BAX012771

PATIENT
  Sex: Female

DRUGS (1)
  1. VIAFLO HARTMANN (RINGER LACTADA) [Suspect]
     Active Substance: CALCIUM CHLORIDE\POTASSIUM CHLORIDE\SODIUM CHLORIDE\SODIUM LACTATE
     Indication: PRODUCT USED FOR UNKNOWN INDICATION
     Dosage: RINGER^S SOLUTION (SODIUM CHLORIDE/POTASSIUM CHLORIDE/CALCIUM CHLORIDE) 8.6 MG/ML + 0.3 MG/ML + 0.25
     Route: 042
     Dates: start: 20200605

REACTIONS (2)
  - Cardio-respiratory arrest [Recovered/Resolved]
  - Wrong product administered [Recovered/Resolved]

NARRATIVE: CASE EVENT DATE: 20200605
